FAERS Safety Report 7101380-9 (Version None)
Quarter: 2010Q4

REPORT INFORMATION
  Report Type: 
  Country: None (occurrence: None)
  Receive Date: 20101115
  Receipt Date: 20101104
  Transmission Date: 20110411
  Serious: Yes (Hospitalization)
  Sender: FDA-Public Use
  Company Number: JP-BRISTOL-MYERS SQUIBB COMPANY-15325475

PATIENT
  Age: 66 Year
  Sex: Male

DRUGS (9)
  1. ABILIFY [Suspect]
     Indication: HALLUCINATION
     Dosage: ORAL SOLUTION 0.1%;INT:16SEP10;24OCT07:16SEP10(1059D);RESTARTED 15OCT10:UNK
     Route: 065
     Dates: start: 20071024
  2. ABILIFY [Suspect]
     Indication: DELUSION
     Dosage: ORAL SOLUTION 0.1%;INT:16SEP10;24OCT07:16SEP10(1059D);RESTARTED 15OCT10:UNK
     Route: 065
     Dates: start: 20071024
  3. MYSLEE [Concomitant]
     Dosage: TAB
     Route: 048
     Dates: start: 20091020, end: 20100916
  4. HALCION [Concomitant]
     Dosage: TAB
     Route: 048
     Dates: start: 20100813, end: 20100916
  5. PARKISTON [Concomitant]
     Dosage: TAB 16SEP10
     Route: 048
     Dates: start: 20091030
  6. QUAZEPAM [Concomitant]
     Dosage: TABS
     Dates: start: 20071121, end: 20100916
  7. HIBERNA [Concomitant]
     Dates: start: 20091024, end: 20100916
  8. AKINETON [Concomitant]
     Dosage: GRANULE
     Dates: end: 20100916
  9. LORAMET [Concomitant]
     Dosage: TABS
     Dates: start: 20100922

REACTIONS (7)
  - ALANINE AMINOTRANSFERASE INCREASED [None]
  - ASPARTATE AMINOTRANSFERASE INCREASED [None]
  - BLOOD ALKALINE PHOSPHATASE INCREASED [None]
  - DYSPHAGIA [None]
  - GAMMA-GLUTAMYLTRANSFERASE INCREASED [None]
  - HEPATIC FUNCTION ABNORMAL [None]
  - PNEUMONIA [None]
